FAERS Safety Report 7005211-7 (Version None)
Quarter: 2010Q3

REPORT INFORMATION
  Report Type: 
  Country: None (occurrence: None)
  Receive Date: 20100921
  Receipt Date: 20100910
  Transmission Date: 20110219
  Serious: Yes (Hospitalization)
  Sender: FDA-Public Use
  Company Number: US-JNJFOC-20100904083

PATIENT
  Sex: Female

DRUGS (8)
  1. REMICADE [Suspect]
     Indication: RHEUMATOID ARTHRITIS
     Route: 042
  2. REMICADE [Suspect]
     Route: 042
  3. PLAQUENIL [Concomitant]
     Indication: RHEUMATOID ARTHRITIS
  4. METHOTREXATE [Concomitant]
     Indication: RHEUMATOID ARTHRITIS
  5. SYNTHROID [Concomitant]
     Indication: HYPOTHYROIDISM
  6. WELLBUTRIN [Concomitant]
     Indication: DEPRESSION
  7. PRIMIDONE [Concomitant]
     Indication: BENIGN NEOPLASM
  8. PRAVACHOL [Concomitant]
     Indication: HYPERCHOLESTEROLAEMIA

REACTIONS (5)
  - APHASIA [None]
  - CLUMSINESS [None]
  - FALL [None]
  - GAIT DISTURBANCE [None]
  - HYDROCEPHALUS [None]
